FAERS Safety Report 16743590 (Version 1)
Quarter: 2019Q3

REPORT INFORMATION
  Report Type: Spontaneous
  Country: US (occurrence: US)
  Receive Date: 20190827
  Receipt Date: 20190827
  Transmission Date: 20191005
  Serious: No
  Sender: FDA-Public Use
  Company Number: US-MALLINCKRODT-T201804106

PATIENT
  Sex: Female

DRUGS (1)
  1. MORPHINE [Suspect]
     Active Substance: MORPHINE
     Indication: PRODUCT USED FOR UNKNOWN INDICATION
     Dosage: 15 MG, QD
     Route: 048
     Dates: start: 201508

REACTIONS (4)
  - Withdrawal syndrome [Unknown]
  - Nausea [Unknown]
  - Diarrhoea [Unknown]
  - Drug ineffective [Unknown]
